FAERS Safety Report 8338357 (Version 4)
Quarter: 2014Q3

REPORT INFORMATION
  Report Type: Spontaneous
  Country: GB (occurrence: GB)
  Receive Date: 20120117
  Receipt Date: 20140728
  Transmission Date: 20150326
  Serious: Yes (Life-Threatening, Hospitalization, Other)
  Sender: FDA-Public Use
  Company Number: GB-RANBAXY-2011R1-51448

PATIENT
  Age: 33 Year
  Sex: Female

DRUGS (1)
  1. AMOXICILLIN CLAVULANATE [Suspect]
     Active Substance: AMOXICILLIN\CLAVULANIC ACID
     Indication: PROPHYLAXIS
     Dosage: UNK
     Route: 042
     Dates: start: 20111214, end: 20111214

REACTIONS (2)
  - Exposure during pregnancy [Unknown]
  - Anaphylactic reaction [Recovering/Resolving]

NARRATIVE: CASE EVENT DATE: 20111214
